FAERS Safety Report 4727037-7 (Version None)
Quarter: 2005Q3

REPORT INFORMATION
  Report Type: 
  Country: None (occurrence: None)
  Receive Date: 20050726
  Receipt Date: 20050726
  Transmission Date: 20060218
  Serious: Yes (Hospitalization)
  Sender: FDA-Public Use
  Company Number: None

PATIENT
  Age: 78 Year
  Sex: Male
  Weight: 88 kg

DRUGS (12)
  1. HYTRIN [Suspect]
  2. EZETEMIBE [Concomitant]
  3. SIMVASTATIN [Concomitant]
  4. DOCUSATE [Concomitant]
  5. ATENOLOL [Concomitant]
  6. FELODIPINE [Concomitant]
  7. HYDROCHLOROTHIAZIDE [Concomitant]
  8. CYANOCOBALAMIN [Concomitant]
  9. CALCIUM/VITAMIN D [Concomitant]
  10. LORAZEPAM [Concomitant]
  11. ACETAMINOPHEN [Concomitant]
  12. ASPIRIN [Concomitant]

REACTIONS (1)
  - SYNCOPE [None]
